FAERS Safety Report 10020106 (Version 2)
Quarter: 2014Q1

REPORT INFORMATION
  Report Type: Spontaneous
  Country: IT (occurrence: IT)
  Receive Date: 20140319
  Receipt Date: 20140322
  Transmission Date: 20141002
  Serious: Yes (Other)
  Sender: FDA-Public Use
  Company Number: IT-ROCHE-1365741

PATIENT
  Age: 54 Year
  Sex: Male
  Weight: 75 kg

DRUGS (4)
  1. PEGASYS [Suspect]
     Indication: ANTIVIRAL TREATMENT
     Route: 058
     Dates: start: 20130411, end: 20140225
  2. COPEGUS [Interacting]
     Indication: ANTIVIRAL TREATMENT
     Route: 048
     Dates: start: 20130411, end: 20130604
  3. COPEGUS [Interacting]
     Route: 048
     Dates: start: 20130604
  4. INCIVO [Interacting]
     Indication: ANTIVIRAL TREATMENT
     Route: 048
     Dates: start: 20130509, end: 20130805

REACTIONS (2)
  - Drug interaction [Unknown]
  - Pancytopenia [Recovered/Resolved]
